FAERS Safety Report 20733870 (Version 1)
Quarter: 2022Q2

REPORT INFORMATION
  Report Type: Spontaneous
  Country: CA (occurrence: CA)
  Receive Date: 20220421
  Receipt Date: 20220421
  Transmission Date: 20220720
  Serious: Yes (Hospitalization, Other)
  Sender: FDA-Public Use
  Company Number: CA-LUPIN PHARMACEUTICALS INC.-2022-05889

PATIENT
  Age: 30 Year
  Sex: Female

DRUGS (7)
  1. ATORVASTATIN CALCIUM [Suspect]
     Active Substance: ATORVASTATIN CALCIUM
     Indication: Product used for unknown indication
     Dosage: UNK
     Route: 065
  2. CLOZAPINE [Suspect]
     Active Substance: CLOZAPINE
     Indication: Antipsychotic therapy
     Dosage: UNK
     Route: 065
     Dates: start: 2015
  3. LITHIUM [Suspect]
     Active Substance: LITHIUM
     Indication: Antipsychotic therapy
     Dosage: UNK
     Route: 065
     Dates: start: 2015
  4. FLUPENTIXOL [Suspect]
     Active Substance: FLUPENTIXOL
     Indication: Antipsychotic therapy
     Dosage: UNK
     Route: 065
     Dates: start: 2015
  5. ELASOMERAN [Suspect]
     Active Substance: ELASOMERAN
     Indication: COVID-19 immunisation
     Dosage: UNK
     Route: 065
  6. FERROUS GLUCONATE [Concomitant]
     Active Substance: FERROUS GLUCONATE
     Indication: Iron deficiency anaemia
     Dosage: UNK
     Route: 065
  7. VITAMIN D [Concomitant]
     Active Substance: VITAMIN D NOS
     Indication: Product used for unknown indication
     Dosage: UNK
     Route: 065

REACTIONS (3)
  - Rhabdomyolysis [Recovered/Resolved]
  - Hepatic enzyme increased [Recovered/Resolved]
  - Condition aggravated [Recovered/Resolved]
